FAERS Safety Report 7674432-2 (Version None)
Quarter: 2011Q3

REPORT INFORMATION
  Report Type: 
  Country: None (occurrence: None)
  Receive Date: 20110810
  Receipt Date: 20110729
  Transmission Date: 20111222
  Serious: Yes (Hospitalization, Other)
  Sender: FDA-Public Use
  Company Number: DE-RANBAXY-2011RR-46661

PATIENT
  Age: 47 Year
  Sex: Female

DRUGS (2)
  1. VERAPAMIL [Suspect]
     Indication: BLOOD PRESSURE
     Route: 065
  2. DOXAZOSIN MESYLATE [Suspect]
     Indication: BLOOD PRESSURE
     Route: 065

REACTIONS (1)
  - ATRIAL FIBRILLATION [None]
